FAERS Safety Report 5714726-0 (Version None)
Quarter: 2008Q2

REPORT INFORMATION
  Report Type: 
  Country: None (occurrence: None)
  Receive Date: 20080423
  Receipt Date: 19950308
  Transmission Date: 20081010
  Serious: Yes (Death)
  Sender: FDA-Public Use
  Company Number: US-ROCHE-950294504001

PATIENT
  Sex: Female
  Weight: 73.9 kg

DRUGS (7)
  1. INTERFERON ALFA-2A [Suspect]
     Indication: MACULAR DEGENERATION
     Route: 058
     Dates: start: 19940518
  2. THYROXIN [Concomitant]
     Indication: HYPOTHYROIDISM
     Route: 048
     Dates: start: 19400101
  3. CARDIZEM SR [Concomitant]
     Indication: CORONARY ARTERY DISEASE
     Route: 048
     Dates: start: 19930101
  4. LIBRAX [Concomitant]
     Indication: DUODENAL ULCER
     Route: 048
     Dates: start: 19600101
  5. LIBRAX [Concomitant]
     Route: 048
     Dates: start: 19600101
  6. HUMULIN N [Concomitant]
     Route: 058
     Dates: start: 19740101
  7. FUROSEMIDE [Concomitant]
     Route: 048
     Dates: start: 19930101

REACTIONS (1)
  - ARRHYTHMIA [None]
